FAERS Safety Report 8136212-3 (Version None)
Quarter: 2012Q1

REPORT INFORMATION
  Report Type: 
  Country: None (occurrence: None)
  Receive Date: 20120214
  Receipt Date: 20120131
  Transmission Date: 20120608
  Serious: Yes (Hospitalization)
  Sender: FDA-Public Use
  Company Number: FI-TEVA-2011005533

PATIENT
  Sex: Male
  Weight: 101 kg

DRUGS (9)
  1. RABEPRAZOLE SODIUM [Concomitant]
     Dates: start: 20040101
  2. RITUXIMAB [Suspect]
     Route: 042
  3. CALCIUM + VITAMIN D [Concomitant]
     Dates: start: 20100301
  4. RITUXIMAB [Suspect]
     Indication: CHRONIC LYMPHOCYTIC LEUKAEMIA
     Route: 042
     Dates: start: 20111019
  5. BENDAMUSTINE HCL [Suspect]
     Indication: CHRONIC LYMPHOCYTIC LEUKAEMIA
     Route: 042
     Dates: start: 20111019
  6. BENDAMUSTINE HCL [Suspect]
     Dosage: 150 MILLIGRAM;
     Route: 042
  7. AMLODIPINE [Concomitant]
     Dates: start: 19910101
  8. ALLOPURINOL [Concomitant]
     Dates: start: 20111012
  9. LOSARTAN POTASSIUM [Concomitant]
     Dates: start: 19910101

REACTIONS (3)
  - LISTERIOSIS [None]
  - PYREXIA [None]
  - BACTERIAL INFECTION [None]
